FAERS Safety Report 23921016 (Version 1)
Quarter: 2024Q2

REPORT INFORMATION
  Report Type: Spontaneous
  Country: US (occurrence: US)
  Receive Date: 20240530
  Receipt Date: 20240530
  Transmission Date: 20240716
  Serious: No
  Sender: FDA-Public Use
  Company Number: US-GLAXOSMITHKLINE-US2024AMR066216

PATIENT
  Sex: Female

DRUGS (1)
  1. ZEJULA [Suspect]
     Active Substance: NIRAPARIB
     Indication: Illness
     Dosage: 2 DF, QD
     Route: 048
     Dates: start: 202311

REACTIONS (4)
  - Dysuria [Unknown]
  - Nausea [Unknown]
  - Dizziness [Unknown]
  - Product use in unapproved indication [Unknown]
